FAERS Safety Report 8383442-1 (Version None)
Quarter: 2012Q2

REPORT INFORMATION
  Report Type: 
  Country: None (occurrence: None)
  Receive Date: 20120524
  Receipt Date: 20120516
  Transmission Date: 20120825
  Serious: Yes (Hospitalization)
  Sender: FDA-Public Use
  Company Number: PHHY2012TW042520

PATIENT
  Sex: Male
  Weight: 75 kg

DRUGS (4)
  1. CLOZARIL [Suspect]
     Indication: SCHIZOPHRENIA
     Dosage: 100 MG, QD
     Route: 048
     Dates: start: 20120426, end: 20120504
  2. CLOZARIL [Suspect]
     Dosage: 125 MG, QD
     Dates: start: 20120504
  3. FLUANXOL [Concomitant]
     Indication: SCHIZOPHRENIA
     Dosage: 20 MG/ML, QW4
     Dates: start: 20120427
  4. ARTANE [Concomitant]
     Indication: ADVERSE DRUG REACTION
     Dosage: 2 MG, QW4
     Route: 048
     Dates: start: 20120426

REACTIONS (6)
  - ACCIDENT [None]
  - NEUTROPHIL COUNT INCREASED [None]
  - PLATELET COUNT INCREASED [None]
  - GRANULOCYTE COUNT INCREASED [None]
  - LYMPHOCYTE COUNT DECREASED [None]
  - WHITE BLOOD CELL COUNT INCREASED [None]
